FAERS Safety Report 13429138 (Version 1)
Quarter: 2017Q2

REPORT INFORMATION
  Report Type: Spontaneous
  Country: AU (occurrence: AU)
  Receive Date: 20170411
  Receipt Date: 20170411
  Transmission Date: 20170830
  Serious: Yes (Death, Life-Threatening, Hospitalization)
  Sender: FDA-Public Use
  Company Number: PHHY2017AU049376

PATIENT
  Age: 60 Year
  Sex: Female

DRUGS (2)
  1. ALEMTUZUMAB [Concomitant]
     Active Substance: ALEMTUZUMAB
     Indication: REFRACTORY CANCER
     Route: 065
  2. FLUDARABINE [Suspect]
     Active Substance: FLUDARABINE PHOSPHATE
     Indication: REFRACTORY CANCER
     Route: 065

REACTIONS (10)
  - Dyspnoea [Unknown]
  - Bone marrow failure [Fatal]
  - Toxoplasmosis [Unknown]
  - Progressive multifocal leukoencephalopathy [Unknown]
  - Urinary tract infection [Unknown]
  - Hypoxia [Unknown]
  - Confusional state [Unknown]
  - Pneumonia [Unknown]
  - Refractory cancer [Fatal]
  - Cerebral toxoplasmosis [Unknown]
